FAERS Safety Report 19454364 (Version 10)
Quarter: 2021Q3

REPORT INFORMATION
  Report Type: Report from Study
  Country: DE (occurrence: DE)
  Receive Date: 20210623
  Receipt Date: 20210928
  Transmission Date: 20211014
  Serious: Yes (Hospitalization)
  Sender: FDA-Public Use
  Company Number: DE-EISAI MEDICAL RESEARCH-EC-2021-094974

PATIENT
  Age: 62 Year
  Sex: Male
  Weight: 66 kg

DRUGS (23)
  1. CREON [Concomitant]
     Active Substance: PANCRELIPASE AMYLASE\PANCRELIPASE LIPASE\PANCRELIPASE PROTEASE
     Dates: start: 20190930
  2. CLEXANE [Concomitant]
     Active Substance: ENOXAPARIN SODIUM
     Route: 058
     Dates: start: 20190930
  3. LOPERAMID [Concomitant]
     Active Substance: LOPERAMIDE
     Dates: start: 20191111
  4. OLMETEC [Concomitant]
     Active Substance: OLMESARTAN MEDOXOMIL
     Dates: start: 201301
  5. BISOPROLOL [Concomitant]
     Active Substance: BISOPROLOL
     Dates: start: 201301
  6. SPIRONOLACTONE. [Concomitant]
     Active Substance: SPIRONOLACTONE
     Dates: start: 20190930
  7. NOVAMINSULFON [Concomitant]
     Active Substance: METAMIZOLE
     Dates: start: 20191125
  8. TRAMADOL HYDROCHLORIDE. [Concomitant]
     Active Substance: TRAMADOL HYDROCHLORIDE
     Dates: start: 20200625
  9. L?THYROXINE [LEVOTHYROXINE SODIUM] [Concomitant]
     Active Substance: LEVOTHYROXINE SODIUM
     Dates: start: 20200114
  10. NYSTALOCAL [Concomitant]
     Dates: start: 20200625
  11. AMITRIPTYLINE HYDROCHLORIDE. [Concomitant]
     Active Substance: AMITRIPTYLINE HYDROCHLORIDE
     Dates: start: 20200805
  12. LENVATINIB [Suspect]
     Active Substance: LENVATINIB
     Indication: HEPATOCELLULAR CARCINOMA
     Dosage: STARTING DOSE 12 MG (BODY WEIGHT GREATER THAN 60 KG), FLUCTUATED DOSAGE
     Route: 048
     Dates: start: 20191111, end: 20210530
  13. LENVATINIB [Suspect]
     Active Substance: LENVATINIB
     Dosage: (BW LESS THAN 60 KG)
     Route: 048
     Dates: start: 20210531, end: 20210615
  14. TRAMADOL HYDROCHLORIDE. [Concomitant]
     Active Substance: TRAMADOL HYDROCHLORIDE
     Dates: start: 20191219
  15. METOCLOPRAMIDE. [Concomitant]
     Active Substance: METOCLOPRAMIDE
     Dates: start: 20200316
  16. PLACEBO [Suspect]
     Active Substance: UNSPECIFIED INGREDIENT
     Indication: HEPATOCELLULAR CARCINOMA
     Route: 041
     Dates: start: 20191111, end: 20210510
  17. PANTOZOLE [Concomitant]
     Active Substance: PANTOPRAZOLE SODIUM
     Dates: start: 20190930
  18. LENVATINIB [Suspect]
     Active Substance: LENVATINIB
     Dosage: (BW LESS THAN 60 KG)
     Route: 048
     Dates: start: 20210629
  19. PLACEBO [Suspect]
     Active Substance: UNSPECIFIED INGREDIENT
     Route: 041
     Dates: start: 20210531, end: 20210531
  20. FORXIGA [Concomitant]
     Active Substance: DAPAGLIFLOZIN
     Dates: start: 201301
  21. METFORMIN [Concomitant]
     Active Substance: METFORMIN HYDROCHLORIDE
     Dates: start: 201301
  22. PANGROL [PANCREATIN] [Concomitant]
     Dates: start: 20200625
  23. PLACEBO [Suspect]
     Active Substance: UNSPECIFIED INGREDIENT
     Route: 041
     Dates: start: 20210712

REACTIONS (1)
  - Osteonecrosis of jaw [Recovered/Resolved]

NARRATIVE: CASE EVENT DATE: 20210614
